FAERS Safety Report 9742193 (Version 1)
Quarter: 2013Q4

REPORT INFORMATION
  Report Type: Spontaneous
  Country: NO (occurrence: NO)
  Receive Date: 20131210
  Receipt Date: 20131210
  Transmission Date: 20140711
  Serious: Yes (Hospitalization, Other)
  Sender: FDA-Public Use
  Company Number: NO-ROCHE-1314945

PATIENT
  Sex: Female

DRUGS (3)
  1. AVASTIN [Suspect]
     Indication: AGE-RELATED MACULAR DEGENERATION
     Dosage: 1.25MG/0.05ML
     Route: 050
     Dates: start: 20111212, end: 20130327
  2. BETADINE [Concomitant]
  3. CHLORAMPHENICOL [Concomitant]

REACTIONS (12)
  - Vertigo [Recovering/Resolving]
  - Headache [Unknown]
  - Eye pain [Unknown]
  - Orthostatic hypotension [Recovering/Resolving]
  - Hyponatraemia [Recovering/Resolving]
  - Nausea [Recovering/Resolving]
  - Malaise [Recovering/Resolving]
  - Ocular hyperaemia [Unknown]
  - Periorbital haematoma [Unknown]
  - Discomfort [Unknown]
  - Off label use [Unknown]
  - Visual impairment [Unknown]
